FAERS Safety Report 22272902 (Version 1)
Quarter: 2023Q2

REPORT INFORMATION
  Report Type: Spontaneous
  Country: US (occurrence: None)
  Receive Date: 20230502
  Receipt Date: 20230502
  Transmission Date: 20230722
  Serious: No
  Sender: FDA-Public Use
  Company Number: 2023A088082

PATIENT
  Sex: Female
  Weight: 66.7 kg

DRUGS (1)
  1. SYMBICORT [Suspect]
     Active Substance: BUDESONIDE\FORMOTEROL FUMARATE DIHYDRATE
     Indication: Asthma
     Dosage: 160 UG TWO TIMES A DAY
     Route: 055

REACTIONS (4)
  - Dyspnoea exertional [Unknown]
  - Device use issue [Unknown]
  - Product use issue [Unknown]
  - Device malfunction [Unknown]
